FAERS Safety Report 4885654-8 (Version None)
Quarter: 2005Q4

REPORT INFORMATION
  Report Type: 
  Country: None (occurrence: None)
  Receive Date: 20051220
  Receipt Date: 20041026
  Transmission Date: 20060501
  Serious: Yes (Hospitalization, Other)
  Sender: FDA-Public Use
  Company Number: HQWYE157928OCT04

PATIENT
  Age: 60 Year
  Sex: Female

DRUGS (4)
  1. EFFEXOR XR [Suspect]
     Indication: DEPRESSION
     Dosage: 37.5 MG 1X PER 1 DAY, ORAL
     Route: 048
     Dates: start: 20041020, end: 20041020
  2. LITHIUM CARBONATE [Concomitant]
  3. LEVOTHYROXINE SODIUM [Concomitant]
  4. DIOVAN [Concomitant]

REACTIONS (2)
  - BRADYCARDIA [None]
  - CHEST DISCOMFORT [None]
